FAERS Safety Report 9511014 (Version 3)
Quarter: 2014Q2

REPORT INFORMATION
  Report Type: Spontaneous
  Country: US (occurrence: None)
  Receive Date: 20130905
  Receipt Date: 20140630
  Transmission Date: 20141212
  Serious: Yes (Hospitalization)
  Sender: FDA-Public Use
  Company Number: 1875062

PATIENT
  Age: 46 Year
  Sex: Male

DRUGS (3)
  1. SUXAMETHONIUM CHLORIDE [Suspect]
     Indication: ENDOTRACHEAL INTUBATION
     Route: 042
  2. ETOMIDATE [Concomitant]
  3. FENTANYL [Concomitant]

REACTIONS (13)
  - Multi-organ disorder [None]
  - Hyperthermia [None]
  - Acidosis [None]
  - Tachycardia [None]
  - Hypotension [None]
  - Leukocytosis [None]
  - Hyperkalaemia [None]
  - Pneumonia aspiration [None]
  - Sepsis [None]
  - Blood creatinine increased [None]
  - Rhabdomyolysis [None]
  - Staphylococcal infection [None]
  - Multi-organ failure [None]
